FAERS Safety Report 15430673 (Version 2)
Quarter: 2018Q4

REPORT INFORMATION
  Report Type: Spontaneous
  Country: AT (occurrence: AT)
  Receive Date: 20180926
  Receipt Date: 20181017
  Transmission Date: 20190204
  Serious: Yes (Other)
  Sender: FDA-Public Use
  Company Number: AT-MYLANLABS-2018M1069787

PATIENT
  Age: 54 Year
  Sex: Female

DRUGS (1)
  1. AMLODIPINE [Suspect]
     Active Substance: AMLODIPINE BESYLATE
     Indication: HYPERTENSION
     Dosage: UNK
     Route: 048

REACTIONS (8)
  - Tachycardia [Unknown]
  - Scintillating scotoma [Unknown]
  - Cerebrovascular accident [Unknown]
  - Hypertensive crisis [Unknown]
  - Photophobia [Unknown]
  - Blood pressure abnormal [Unknown]
  - Angina pectoris [Unknown]
  - Migraine [Unknown]

NARRATIVE: CASE EVENT DATE: 2017
